FAERS Safety Report 24683761 (Version 1)
Quarter: 2024Q4

REPORT INFORMATION
  Report Type: Spontaneous
  Country: VN (occurrence: VN)
  Receive Date: 20241202
  Receipt Date: 20241202
  Transmission Date: 20250115
  Serious: Yes (Other)
  Sender: NOVARTIS
  Company Number: VN-002147023-NVSC2024VN228234

PATIENT
  Age: 56 Year
  Sex: Female

DRUGS (1)
  1. CERITINIB [Suspect]
     Active Substance: CERITINIB
     Indication: Lung neoplasm malignant
     Dosage: UNK 1 TABLET (150MG)
     Route: 065

REACTIONS (3)
  - Lung neoplasm malignant [Unknown]
  - Malignant neoplasm progression [Unknown]
  - Off label use [Unknown]
